FAERS Safety Report 4381768-X (Version None)
Quarter: 2004Q2

REPORT INFORMATION
  Report Type: 
  Country: None (occurrence: None)
  Receive Date: 20040603
  Receipt Date: 20030814
  Transmission Date: 20050107
  Serious: Yes (Death)
  Sender: FDA-Public Use
  Company Number: 200317377US

PATIENT
  Age: 71 Year
  Sex: Female

DRUGS (2)
  1. LOVENOX [Suspect]
     Indication: ACUTE MYOCARDIAL INFARCTION
  2. RETEPLASE (RETAVASE) [Suspect]
     Indication: ACUTE MYOCARDIAL INFARCTION

REACTIONS (1)
  - HAEMORRHAGE INTRACRANIAL [None]
